FAERS Safety Report 10625113 (Version 1)
Quarter: 2014Q4

REPORT INFORMATION
  Report Type: Spontaneous
  Country: GB (occurrence: None)
  Receive Date: 20141202
  Receipt Date: 20141202
  Transmission Date: 20150529
  Serious: Yes (Life-Threatening, Hospitalization, Other)
  Sender: FDA-Public Use
  Company Number: GB-DEXPHARM-20140914

PATIENT
  Age: 61 Year
  Sex: Male

DRUGS (3)
  1. TEICOPLANIN [Suspect]
     Active Substance: TEICOPLANIN
     Indication: ANTIBIOTIC PROPHYLAXIS
     Route: 042
     Dates: start: 20141031, end: 20141031
  2. ROCURONIUM [Suspect]
     Active Substance: ROCURONIUM BROMIDE
     Indication: GENERAL ANAESTHESIA
     Route: 042
     Dates: start: 20141031, end: 20141031
  3. CHLORHEXIDINE ACTIVE SUBSTANCES: CHLORHEXIDINE [Suspect]
     Active Substance: CHLORHEXIDINE
     Indication: BLADDER CATHETERISATION
     Dosage: DOSAGE TEXT: SKIN PREPARATION
     Route: 061
     Dates: start: 20141031, end: 20141031

REACTIONS (1)
  - Procedural hypotension [None]

NARRATIVE: CASE EVENT DATE: 20141031
